FAERS Safety Report 21385448 (Version 1)
Quarter: 2022Q3

REPORT INFORMATION
  Report Type: Other
  Country: US (occurrence: None)
  Receive Date: 20220928
  Receipt Date: 20220928
  Transmission Date: 20221026
  Serious: Yes (Hospitalization, Other)
  Sender: FDA-Public Use
  Company Number: US-ROCHE-2752279

PATIENT
  Sex: Female

DRUGS (11)
  1. ESBRIET [Suspect]
     Active Substance: PIRFENIDONE
     Indication: Pulmonary fibrosis
     Dosage: TAKE 3 TABLETS BY MOUTH THREE TIMES A DAY WITH MEALS
     Route: 048
     Dates: start: 201911
  2. ESBRIET [Suspect]
     Active Substance: PIRFENIDONE
     Indication: Idiopathic pulmonary fibrosis
     Route: 048
  3. CALTRATE [Concomitant]
     Active Substance: CALCIUM CARBONATE
     Dosage: BY MOUTH
     Route: 048
  4. CHOLECALCIFEROL [Concomitant]
     Active Substance: CHOLECALCIFEROL
     Dosage: BY MOUTH
     Route: 048
  5. GLUCOSAMINE CHONDROITIN COMPLEX ADVANV (UNK INGREDIENTS) [Concomitant]
     Dosage: BY MOUTH
     Route: 048
  6. IBUPROFEN [Concomitant]
     Active Substance: IBUPROFEN
     Indication: Pain
     Dosage: TAKE 1 TAB BY MOUTH EVERY 8 HOURS AS NEEDED
  7. ATROVENT [Concomitant]
     Active Substance: IPRATROPIUM BROMIDE
     Dosage: PLACE 2 SPRAYS INTO THE NOSE EVERY 12 HOURS, PM
     Route: 045
  8. ATROVENT [Concomitant]
     Active Substance: IPRATROPIUM BROMIDE
     Dosage: 2 PUFF BID PM
     Route: 045
  9. CALCIUM CARBONATE [Concomitant]
     Active Substance: CALCIUM CARBONATE
  10. IPRATROPIUM [Concomitant]
     Active Substance: IPRATROPIUM
  11. MIRTAZAPINE [Concomitant]
     Active Substance: MIRTAZAPINE

REACTIONS (21)
  - Nausea [Not Recovered/Not Resolved]
  - Fatigue [Unknown]
  - Weight decreased [Recovered/Resolved]
  - Rash [Not Recovered/Not Resolved]
  - Vomiting [Recovered/Resolved]
  - Exercise tolerance decreased [Not Recovered/Not Resolved]
  - Decreased appetite [Recovered/Resolved]
  - Gait disturbance [Not Recovered/Not Resolved]
  - Wheezing [Not Recovered/Not Resolved]
  - Dyspnoea [Not Recovered/Not Resolved]
  - Off label use [Unknown]
  - Abdominal discomfort [Not Recovered/Not Resolved]
  - Insomnia [Unknown]
  - Feeling abnormal [Unknown]
  - Hypoacusis [Unknown]
  - Abdominal pain upper [Unknown]
  - Constipation [Unknown]
  - Pulmonary hypertension [Unknown]
  - Rash pruritic [Not Recovered/Not Resolved]
  - Oxygen saturation decreased [Unknown]
  - Dyspnoea [Unknown]
